FAERS Safety Report 6424602-6 (Version None)
Quarter: 2009Q4

REPORT INFORMATION
  Report Type: 
  Country: None (occurrence: None)
  Receive Date: 20091103
  Receipt Date: 20091027
  Transmission Date: 20100525
  Serious: Yes (Hospitalization)
  Sender: FDA-Public Use
  Company Number: PHHY2009FR11177

PATIENT
  Sex: Male

DRUGS (7)
  1. NEORAL [Suspect]
     Indication: RENAL TRANSPLANT
     Dosage: UNK
     Dates: start: 20081221
  2. INIPOMP [Suspect]
     Dosage: UNK
     Dates: start: 20081221
  3. CELLCEPT [Suspect]
     Indication: RENAL TRANSPLANT
     Dosage: 1 G, BID
     Route: 048
     Dates: start: 20080221
  4. SOLUPRED [Suspect]
     Indication: RENAL TRANSPLANT
     Dosage: 10 MG, QD
     Route: 048
     Dates: start: 20081221
  5. RIMIFON [Suspect]
     Dosage: 150 MG, QD
     Route: 048
     Dates: start: 20081221
  6. BACTRIM [Suspect]
     Dosage: UNK
     Route: 048
  7. AVLOCARDYL [Suspect]
     Indication: HYPERTENSION
     Dosage: UNK

REACTIONS (4)
  - ARTHRALGIA [None]
  - ARTHRITIS [None]
  - HYPERURICAEMIA [None]
  - JOINT EFFUSION [None]
